FAERS Safety Report 10143893 (Version 5)
Quarter: 2014Q2

REPORT INFORMATION
  Report Type: Report from Study
  Country: KR (occurrence: KR)
  Receive Date: 20140430
  Receipt Date: 20140618
  Transmission Date: 20141212
  Serious: Yes (Hospitalization)
  Sender: FDA-Public Use
  Company Number: KR-ASTELLAS-2014JP002628

PATIENT
  Age: 22 Year
  Sex: Male

DRUGS (34)
  1. TACROLIMUS [Suspect]
     Indication: IMMUNOSUPPRESSANT DRUG THERAPY
     Dosage: 4 MG/DAY
     Route: 048
     Dates: start: 20140107, end: 20140313
  2. TACROLIMUS [Suspect]
     Dosage: 4 MG/DAY
     Route: 048
     Dates: start: 20140317, end: 20140407
  3. TACROLIMUS [Suspect]
     Dosage: 4 MG/DAY
     Route: 048
     Dates: start: 20140410, end: 20140503
  4. TACROLIMUS [Suspect]
     Dosage: 4 MG/DAY
     Route: 048
     Dates: start: 20140506
  5. RAPAMUNE [Suspect]
     Indication: IMMUNOSUPPRESSANT DRUG THERAPY
     Dosage: 1 MG/DAY
     Route: 048
     Dates: start: 20140109, end: 20140315
  6. RAPAMUNE [Suspect]
     Dosage: 1 MG/DAY
     Route: 048
     Dates: start: 20140327, end: 20140406
  7. RAPAMUNE [Suspect]
     Dosage: 1.5 MG/DAY
     Route: 048
     Dates: start: 20140430, end: 20140503
  8. TABAXIN [Concomitant]
     Indication: PRODUCT USED FOR UNKNOWN INDICATION
     Route: 042
  9. TABAXIN [Concomitant]
     Dosage: 9 G/DAY
     Route: 042
  10. VALCYTE [Concomitant]
     Indication: PRODUCT USED FOR UNKNOWN INDICATION
     Route: 048
     Dates: start: 20140314, end: 20140314
  11. VALCYTE [Concomitant]
     Route: 048
     Dates: start: 20140416
  12. CYMEVENE                           /00784201/ [Concomitant]
     Indication: PRODUCT USED FOR UNKNOWN INDICATION
     Dosage: 150 MG/DAY
     Route: 042
     Dates: start: 20140315, end: 20140328
  13. CYMEVENE                           /00784201/ [Concomitant]
     Dosage: 150 MG/DAY
     Route: 042
     Dates: start: 20140406, end: 20140416
  14. CYMEVENE                           /00784201/ [Concomitant]
     Dosage: 150 MG/DAY
     Route: 042
     Dates: start: 20140506, end: 20140508
  15. PHOSTEN [Concomitant]
     Indication: PRODUCT USED FOR UNKNOWN INDICATION
     Dosage: 40 CC/HR
     Route: 042
     Dates: start: 20140315, end: 20140317
  16. PMS NYSTATIN [Concomitant]
     Indication: PRODUCT USED FOR UNKNOWN INDICATION
     Route: 048
     Dates: start: 20140314
  17. HEXAMEDINE [Concomitant]
     Indication: PRODUCT USED FOR UNKNOWN INDICATION
     Dosage: UNKNOWN
     Route: 050
     Dates: start: 20140107
  18. TACENOL [Concomitant]
     Indication: PRODUCT USED FOR UNKNOWN INDICATION
     Dosage: UNK, THRICE DAILY
     Route: 048
     Dates: start: 20140316, end: 20140320
  19. DENOGAN [Concomitant]
     Indication: PRODUCT USED FOR UNKNOWN INDICATION
     Dosage: 1 G/DAY
     Route: 042
     Dates: start: 20140313, end: 20140315
  20. CEFTRIAXONE [Concomitant]
     Indication: PRODUCT USED FOR UNKNOWN INDICATION
     Dosage: 1 G/DAY
     Route: 042
     Dates: start: 20140316, end: 20140324
  21. CEFTRIAXONE [Concomitant]
     Dosage: 1G/DAY
     Route: 042
     Dates: start: 20140406, end: 20140406
  22. CEFTRIAXONE [Concomitant]
     Dosage: 1G/DAY
     Dates: start: 20140504, end: 20140507
  23. DISOLIN [Concomitant]
     Indication: PRODUCT USED FOR UNKNOWN INDICATION
     Dosage: 20 MG/DAY
     Route: 042
     Dates: start: 20140316, end: 20140323
  24. CRAVIT [Concomitant]
     Indication: PRODUCT USED FOR UNKNOWN INDICATION
     Route: 048
     Dates: start: 20140414, end: 20140422
  25. CRAVIT [Concomitant]
     Route: 048
     Dates: start: 20140504, end: 20140504
  26. NEPHVITA [Concomitant]
     Indication: PRODUCT USED FOR UNKNOWN INDICATION
     Route: 048
     Dates: start: 20140329
  27. BANAN [Concomitant]
     Indication: PRODUCT USED FOR UNKNOWN INDICATION
     Route: 048
     Dates: start: 20140414, end: 20140422
  28. BANAN [Concomitant]
     Route: 048
     Dates: start: 20140508
  29. PANTOLOC                           /01263204/ [Concomitant]
     Indication: PRODUCT USED FOR UNKNOWN INDICATION
     Route: 048
     Dates: start: 20140320, end: 20140507
  30. PREDNISOLONE [Concomitant]
     Indication: PRODUCT USED FOR UNKNOWN INDICATION
     Dosage: 7.5 MG/DAY
     Route: 048
     Dates: start: 20140324, end: 20140415
  31. PREDNISOLONE [Concomitant]
     Dosage: 12.5 MG/DAY
     Route: 048
     Dates: start: 20140416, end: 20140503
  32. PREDNISOLONE [Concomitant]
     Dosage: 15 MG/DAY
     Route: 048
     Dates: start: 20140506, end: 20140507
  33. PREDNISOLONE [Concomitant]
     Dosage: 12.5 MG/DAY
     Route: 048
     Dates: start: 20140508
  34. FLASINYL [Concomitant]
     Indication: PRODUCT USED FOR UNKNOWN INDICATION
     Route: 048
     Dates: start: 20140505

REACTIONS (4)
  - Seroma [Recovered/Resolved]
  - Cytomegalovirus viraemia [Recovered/Resolved]
  - Atypical pneumonia [Recovered/Resolved]
  - Pyrexia [Recovered/Resolved]
